FAERS Safety Report 16679715 (Version 1)
Quarter: 2019Q3

REPORT INFORMATION
  Report Type: Spontaneous
  Country: US (occurrence: US)
  Receive Date: 20190807
  Receipt Date: 20190807
  Transmission Date: 20191004
  Serious: No
  Sender: FDA-Public Use
  Company Number: US-TEVA-2019-US-1086246

PATIENT
  Age: 53 Year
  Sex: Female
  Weight: 55.84 kg

DRUGS (8)
  1. ALPRAZOLAM ACTAVIS [Suspect]
     Active Substance: ALPRAZOLAM
     Indication: ANXIETY
     Dosage: 1 MILLIGRAM DAILY;
     Route: 065
     Dates: start: 20190729
  2. VITAMIN D3 [Concomitant]
     Active Substance: CHOLECALCIFEROL
  3. MIRTAZAPINE. [Concomitant]
     Active Substance: MIRTAZAPINE
     Indication: SLEEP DISORDER
     Dosage: 15 MILLIGRAM DAILY; START DATE: 5-6 YEARS AGO, AT NIGHT
  4. TRAZODONE [Concomitant]
     Active Substance: TRAZODONE HYDROCHLORIDE
     Indication: SLEEP DISORDER
     Dosage: 100 MILLIGRAM DAILY; START DATE: 5-6 YEARS AGO, AT NIGHT
  5. VITAMIN C [Concomitant]
     Active Substance: ASCORBIC ACID
  6. CORTISONE [Concomitant]
     Active Substance: CORTISONE
     Dosage: FREQUENCY: ONCE, (SACROILIAC JOINT SHOT)
     Dates: start: 20190709
  7. ALPRAZOLAM ACTAVIS [Suspect]
     Active Substance: ALPRAZOLAM
     Indication: SLEEP DISORDER
  8. CORTIZONE KNEE SHOT [Concomitant]
     Dosage: 2 YEARS AGO, FREQUENCY: ONCE

REACTIONS (5)
  - Loss of personal independence in daily activities [Recovered/Resolved]
  - Somnolence [Recovered/Resolved]
  - Malaise [Recovered/Resolved]
  - Feeling abnormal [Recovered/Resolved]
  - Product quality issue [Unknown]

NARRATIVE: CASE EVENT DATE: 20190730
